FAERS Safety Report 6937564-X (Version None)
Quarter: 2010Q3

REPORT INFORMATION
  Report Type: 
  Country: None (occurrence: None)
  Receive Date: 20100823
  Receipt Date: 20100810
  Transmission Date: 20110219
  Serious: Yes (Hospitalization)
  Sender: FDA-Public Use
  Company Number: US-ELI_LILLY_AND_COMPANY-US201008005180

PATIENT
  Sex: Female

DRUGS (3)
  1. FORTEO [Suspect]
     Indication: OSTEOPOROSIS
     Dosage: 20 UG, DAILY (1/D)
  2. DARVON [Concomitant]
  3. KEFLEX [Concomitant]

REACTIONS (5)
  - EAR INFECTION [None]
  - HEARING IMPAIRED [None]
  - OROPHARYNGEAL PAIN [None]
  - SPINAL LAMINECTOMY [None]
  - SURGERY [None]
